FAERS Safety Report 24209696 (Version 1)
Quarter: 2024Q3

REPORT INFORMATION
  Report Type: Spontaneous
  Country: TW (occurrence: TW)
  Receive Date: 20240814
  Receipt Date: 20240814
  Transmission Date: 20241017
  Serious: Yes (Death, Hospitalization, Other)
  Sender: AMGEN
  Company Number: TW-AMGEN-TWNSP2024159241

PATIENT

DRUGS (1)
  1. XGEVA [Suspect]
     Active Substance: DENOSUMAB
     Indication: Metastases to spine
     Dosage: UNK
     Route: 065

REACTIONS (6)
  - Death [Fatal]
  - Unevaluable event [Unknown]
  - Non-small cell lung cancer metastatic [Unknown]
  - Procedural haemorrhage [Unknown]
  - Wound infection [Unknown]
  - Wound dehiscence [Unknown]
